FAERS Safety Report 8422455 (Version 4)
Quarter: 2014Q1

REPORT INFORMATION
  Report Type: Spontaneous
  Country: US (occurrence: US)
  Receive Date: 20120223
  Receipt Date: 20140109
  Transmission Date: 20141002
  Serious: Yes (Hospitalization)
  Sender: FDA-Public Use
  Company Number: US-BAYER-2012-016580

PATIENT
  Age: 28 Year
  Sex: Female
  Weight: 54.42 kg

DRUGS (2)
  1. MIRENA [Suspect]
     Indication: CONTRACEPTION
     Dosage: 20 ?G/D, CONT
     Route: 015
     Dates: start: 20090818, end: 201202
  2. DOXYCYCLINE [Concomitant]
     Dosage: UNK
     Dates: start: 20120201

REACTIONS (7)
  - Uterine perforation [None]
  - Abdominal pain [None]
  - Ovarian cyst [None]
  - Pelvic pain [None]
  - Injury [None]
  - Emotional distress [None]
  - Dyspareunia [None]
